FAERS Safety Report 9430353 (Version 1)
Quarter: 2013Q3

REPORT INFORMATION
  Report Type: Spontaneous
  Country: GB (occurrence: None)
  Receive Date: 20130726
  Receipt Date: 20130726
  Transmission Date: 20140515
  Serious: Yes (Disabling, Other)
  Sender: FDA-Public Use
  Company Number: AUR-APL-2013-06123

PATIENT
  Age: 64 Year
  Sex: Male
  Weight: 82.55 kg

DRUGS (8)
  1. SIMVASTATIN [Suspect]
     Indication: HYPER HDL CHOLESTEROLAEMIA
     Route: 048
     Dates: start: 2004, end: 20130501
  2. ASPIRIN (ACETYLSALICYLIC ACID) [Concomitant]
  3. ATENOLOL (ATENOLOL) [Concomitant]
  4. GLYCERYL TRINITRATE (GLYCERYL TRINITRATE) [Concomitant]
  5. ISOSORBIDE (ISOSORBIDE) [Concomitant]
  6. METFORMIN (METFORMIN) [Concomitant]
  7. RAMIPRIL (RAMIPRIL) [Concomitant]
  8. SLOZEN (DILTIAZEM HYDROCHLORIDE) [Concomitant]

REACTIONS (4)
  - Sexual dysfunction [None]
  - Amnesia [None]
  - Activities of daily living impaired [None]
  - Impaired driving ability [None]
